FAERS Safety Report 9224274 (Version 1)
Quarter: 2013Q1

REPORT INFORMATION
  Report Type: Spontaneous
  Country: US (occurrence: US)
  Receive Date: 20120914
  Receipt Date: 20120914
  Transmission Date: 20140127
  Serious: Yes (Hospitalization)
  Sender: FDA-Public Use
  Company Number: JPI-P-021128

PATIENT
  Age: 59 Year
  Sex: Female
  Weight: 83.46 kg

DRUGS (13)
  1. XYREM (500 MG/ML SOLUTION)(SODIUM OXYBATE) [Suspect]
     Indication: CATAPLEXY
     Dosage: 2 DOSES OF 2.25 GM TAKEN NIGHTLY/AT BEDTIME.
     Route: 048
     Dates: start: 20060706
  2. WARFARIN SODIUM [Concomitant]
  3. MODAFINIL [Concomitant]
  4. PRAVASTATIN [Concomitant]
  5. OMEPRAZOLE [Concomitant]
  6. METOPROLOL [Concomitant]
  7. METFORMIN [Concomitant]
  8. GABAPENTIN [Concomitant]
  9. FEXOFENADINE [Concomitant]
  10. AMLODIPINE [Concomitant]
  11. ALPRAZOLAM [Concomitant]
  12. TRAZODONE [Concomitant]
  13. VENLAFAXINE HYDROCHLORIDE [Concomitant]

REACTIONS (2)
  - Pneumonia [None]
  - Chest pain [None]
